FAERS Safety Report 10172672 (Version 4)
Quarter: 2014Q3

REPORT INFORMATION
  Report Type: Spontaneous
  Country: IT (occurrence: IT)
  Receive Date: 20140515
  Receipt Date: 20140728
  Transmission Date: 20150326
  Serious: Yes (Hospitalization)
  Sender: FDA-Public Use
  Company Number: IT-BRISTOL-MYERS SQUIBB COMPANY-20717849

PATIENT
  Age: 78 Year
  Sex: Male

DRUGS (11)
  1. COUMADIN [Suspect]
     Active Substance: WARFARIN SODIUM
     Indication: ATRIAL FIBRILLATION
     Dates: start: 20140101, end: 20140219
  2. FUROSEMIDE. [Concomitant]
     Active Substance: FUROSEMIDE
  3. CLAVULANIC ACID [Concomitant]
     Active Substance: CLAVULANIC ACID
  4. PARACETAMOL [Concomitant]
     Active Substance: ACETAMINOPHEN
  5. LEVETIRACETAM. [Concomitant]
     Active Substance: LEVETIRACETAM
  6. AMOXICILLIN TRIHYDRATE [Concomitant]
     Active Substance: AMOXICILLIN
  7. LEVODOPA [Concomitant]
     Active Substance: LEVODOPA
  8. DEPAKOTE [Interacting]
     Active Substance: DIVALPROEX SODIUM
     Indication: STATUS EPILEPTICUS
     Dosage: 1 DF = 400MG/4ML.INFUSION
     Dates: start: 20140220, end: 20140224
  9. ATORVASTATIN CALCIUM. [Concomitant]
     Active Substance: ATORVASTATIN CALCIUM
  10. CARBIDOPA AND LEVODOPA [Concomitant]
     Active Substance: CARBIDOPA\LEVODOPA
  11. QUETIAPINE [Concomitant]
     Active Substance: QUETIAPINE

REACTIONS (4)
  - Drug interaction [Recovered/Resolved]
  - Convulsion [Unknown]
  - Anaemia [Recovered/Resolved]
  - Muscle haemorrhage [Recovered/Resolved]

NARRATIVE: CASE EVENT DATE: 20140220
